FAERS Safety Report 6071416-5 (Version None)
Quarter: 2009Q1

REPORT INFORMATION
  Report Type: 
  Country: None (occurrence: None)
  Receive Date: 20090204
  Receipt Date: 20090121
  Transmission Date: 20090719
  Serious: Yes (Hospitalization, Other)
  Sender: FDA-Public Use
  Company Number: 2008SP003218

PATIENT
  Age: 65 Year
  Sex: Female

DRUGS (14)
  1. XOPENEX HFA [Suspect]
     Indication: ASTHMA
     Dosage: 90 UG;BID;INHALATION ; 90 UG;BID;INHALATION
     Route: 055
     Dates: start: 20080501, end: 20081209
  2. XOPENEX HFA [Suspect]
     Indication: CHRONIC OBSTRUCTIVE PULMONARY DISEASE
     Dosage: 90 UG;BID;INHALATION ; 90 UG;BID;INHALATION
     Route: 055
     Dates: start: 20080501, end: 20081209
  3. XOPENEX HFA [Suspect]
     Indication: ASTHMA
     Dosage: 90 UG;BID;INHALATION ; 90 UG;BID;INHALATION
     Route: 055
     Dates: start: 20081201
  4. XOPENEX HFA [Suspect]
     Indication: CHRONIC OBSTRUCTIVE PULMONARY DISEASE
     Dosage: 90 UG;BID;INHALATION ; 90 UG;BID;INHALATION
     Route: 055
     Dates: start: 20081201
  5. DEPAKOTE [Suspect]
     Indication: CONVULSION
     Dosage: 1000 MG;BID;ORAL ; 750 MG;BID;ORAL ; 1000 MG;BID;ORAL
     Route: 048
     Dates: start: 20080801, end: 20081210
  6. DEPAKOTE [Suspect]
     Indication: CONVULSION
     Dosage: 1000 MG;BID;ORAL ; 750 MG;BID;ORAL ; 1000 MG;BID;ORAL
     Route: 048
     Dates: start: 20081211, end: 20081211
  7. DEPAKOTE [Suspect]
     Indication: CONVULSION
     Dosage: 1000 MG;BID;ORAL ; 750 MG;BID;ORAL ; 1000 MG;BID;ORAL
     Route: 048
     Dates: start: 20081212
  8. SINGULAIR /01362602/ [Concomitant]
  9. ESTROGEN NOS [Concomitant]
  10. ZOLOFT /01011402/ [Concomitant]
  11. SPIRIVA [Concomitant]
  12. ALBUTEROL SULFATE /00139502/ [Concomitant]
  13. ADVAIR DISKUS 100/50 [Concomitant]
  14. PHENYTOIN [Concomitant]

REACTIONS (20)
  - ASTHENIA [None]
  - BACK PAIN [None]
  - BLOOD CHOLESTEROL INCREASED [None]
  - BLOOD PRESSURE DIASTOLIC DECREASED [None]
  - BLOOD PRESSURE INCREASED [None]
  - BODY TEMPERATURE DECREASED [None]
  - CONFUSIONAL STATE [None]
  - CONSTIPATION [None]
  - CONTUSION [None]
  - ESSENTIAL TREMOR [None]
  - FALL [None]
  - GAIT DISTURBANCE [None]
  - GRAND MAL CONVULSION [None]
  - HEAD INJURY [None]
  - HEADACHE [None]
  - JOINT INJURY [None]
  - SOFT TISSUE INJURY [None]
  - TENDERNESS [None]
  - THERAPEUTIC RESPONSE UNEXPECTED WITH DRUG SUBSTITUTION [None]
  - VERTEBRAL INJURY [None]
